FAERS Safety Report 8615491-X (Version None)
Quarter: 2012Q3

REPORT INFORMATION
  Report Type: 
  Country: None (occurrence: None)
  Receive Date: 20120823
  Receipt Date: 20120814
  Transmission Date: 20120928
  Serious: Yes (Hospitalization, Other)
  Sender: FDA-Public Use
  Company Number: US-ELI_LILLY_AND_COMPANY-US201208004488

PATIENT
  Age: 16 Year
  Sex: Male

DRUGS (4)
  1. ACETAMINOPHEN [Concomitant]
     Indication: PLASMODIUM FALCIPARUM INFECTION
     Dosage: 650 MG, PRN
     Route: 048
  2. QUINIDINE GLUCONATE [Suspect]
     Dosage: 0.02 MG/KG, EVERY HOUR
     Route: 042
  3. DOXYCYCLINE HCL [Concomitant]
     Indication: PLASMODIUM FALCIPARUM INFECTION
     Dosage: 100 MG, BID
     Route: 042
  4. QUINIDINE GLUCONATE [Suspect]
     Dosage: 2400 MG, OTHER
     Route: 042

REACTIONS (3)
  - HYPOCALCAEMIA [None]
  - HEART RATE DECREASED [None]
  - ELECTROCARDIOGRAM QT PROLONGED [None]
